FAERS Safety Report 6869349-7 (Version None)
Quarter: 2010Q3

REPORT INFORMATION
  Report Type: 
  Country: None (occurrence: None)
  Receive Date: 20100722
  Receipt Date: 20080723
  Transmission Date: 20110219
  Serious: No
  Sender: FDA-Public Use
  Company Number: US-PFIZER INC-2008062733

PATIENT
  Sex: Male
  Weight: 72.57 kg

DRUGS (4)
  1. CHANTIX [Suspect]
     Indication: SMOKING CESSATION THERAPY
     Dates: start: 20080701, end: 20080701
  2. ACTOS [Concomitant]
  3. GLIPIZIDE [Concomitant]
  4. METFORMIN HYDROCHLORIDE/SITAGLIPTIN [Concomitant]

REACTIONS (1)
  - ABNORMAL DREAMS [None]
